FAERS Safety Report 19132140 (Version 1)
Quarter: 2021Q2

REPORT INFORMATION
  Report Type: Spontaneous
  Country: US (occurrence: US)
  Receive Date: 20210414
  Receipt Date: 20210414
  Transmission Date: 20210717
  Serious: Yes (Other)
  Sender: FDA-Public Use
  Company Number: US-LUPIN PHARMACEUTICALS INC.-2021-04652

PATIENT
  Age: 73 Year
  Sex: Male

DRUGS (11)
  1. CALCIUM GLUCONATE. [Concomitant]
     Active Substance: CALCIUM GLUCONATE
     Indication: HYPOCALCAEMIA
     Dosage: 5000 MILLIGRAM, 5000 MG/500 ML CALCIUM GLUCONATE WITH 5% GLUCOSE [DEXTROSE] AT AN INFUSION RATE OF 5
     Route: 065
  2. CALCITRIOL. [Suspect]
     Active Substance: CALCITRIOL
     Indication: HYPOCALCAEMIA
     Dosage: 0.5 MICROGRAM
     Route: 065
  3. NIVOLUMAB [Concomitant]
     Active Substance: NIVOLUMAB
     Indication: METASTATIC MALIGNANT MELANOMA
     Dosage: 1 MILLIGRAM/KILOGRAM, EVERY 3 WEEKS
     Route: 042
  4. CALCIUM GLUCONATE. [Concomitant]
     Active Substance: CALCIUM GLUCONATE
     Indication: PRIMARY HYPOPARATHYROIDISM
  5. IPILIMUMAB [Concomitant]
     Active Substance: IPILIMUMAB
     Indication: METASTATIC MALIGNANT MELANOMA
     Dosage: 3 MILLIGRAM/KILOGRAM, EVERY 3 WEEKS
     Route: 042
  6. CALCIUM [Suspect]
     Active Substance: CALCIUM
     Indication: PRIMARY HYPOPARATHYROIDISM
     Dosage: UNK, EQUIVALENT TO 1000MG OF ELEMENTAL CALCIUM
     Route: 048
  7. CALCITRIOL. [Suspect]
     Active Substance: CALCITRIOL
     Indication: PRIMARY HYPOPARATHYROIDISM
     Dosage: 0.25 MICROGRAM
     Route: 065
  8. ERGOCALCIFEROL. [Concomitant]
     Active Substance: ERGOCALCIFEROL
     Indication: HYPOCALCAEMIA
     Dosage: 50000 INTERNATIONAL UNIT, SCHEDULED DAILY FOR 5 DAYS AND WEEKLY, THEREAFTER
     Route: 065
  9. ERGOCALCIFEROL. [Concomitant]
     Active Substance: ERGOCALCIFEROL
     Indication: PRIMARY HYPOPARATHYROIDISM
  10. CALCIUM [Suspect]
     Active Substance: CALCIUM
     Indication: HYPOCALCAEMIA
     Dosage: UNK, EQUIVALENT TO 1500MG OF ELEMENTAL CALCIUM THREE TIMES DAILY
     Route: 048
  11. DEXTROSE. [Concomitant]
     Active Substance: DEXTROSE
     Indication: VEHICLE SOLUTION USE
     Dosage: 5000 MILLIGRAM, 5000 MG/500 ML CALCIUM GLUCONATE WITH 5% GLUCOSE [DEXTROSE] AT AN INFUSION RATE OF 5
     Route: 065

REACTIONS (1)
  - Rebound effect [Unknown]
